FAERS Safety Report 9915801 (Version 1)
Quarter: 2014Q1

REPORT INFORMATION
  Report Type: Spontaneous
  Country: US (occurrence: None)
  Receive Date: 20140219
  Receipt Date: 20140219
  Transmission Date: 20141002
  Serious: Yes (Other)
  Sender: FDA-Public Use
  Company Number: None

PATIENT
  Age: 43 Year
  Sex: Female
  Weight: 58.97 kg

DRUGS (3)
  1. VENLAFAXINE XR [Suspect]
     Indication: PRODUCT SUBSTITUTION ISSUE
     Dosage: 3 PILLS ONCE DAILY BY MOUTH
     Route: 048
     Dates: start: 201107
  2. LEVOTHYROXINE [Concomitant]
  3. XANAX [Concomitant]

REACTIONS (9)
  - Product substitution issue [None]
  - Nausea [None]
  - Dizziness [None]
  - Anger [None]
  - Depression [None]
  - Anxiety [None]
  - Sleep disorder [None]
  - Diarrhoea [None]
  - Irritability [None]
